FAERS Safety Report 4779906-X (Version None)
Quarter: 2005Q3

REPORT INFORMATION
  Report Type: 
  Country: None (occurrence: None)
  Receive Date: 20050914
  Receipt Date: 20050516
  Transmission Date: 20060218
  Serious: Yes (Hospitalization, Other)
  Sender: FDA-Public Use
  Company Number: 163-20785-05050268

PATIENT
  Age: 60 Year
  Sex: Female

DRUGS (25)
  1. THALOMID [Suspect]
     Indication: MULTIPLE MYELOMA
     Dosage: 100 MG, DAILY, ORAL; 400 MG, DAILY, ORAL; 100 MG, DAILY, ORAL
     Route: 048
     Dates: start: 20030106, end: 20030301
  2. THALOMID [Suspect]
     Indication: MULTIPLE MYELOMA
     Dosage: 100 MG, DAILY, ORAL; 400 MG, DAILY, ORAL; 100 MG, DAILY, ORAL
     Route: 048
     Dates: start: 20030317, end: 20030427
  3. THALOMID [Suspect]
     Indication: MULTIPLE MYELOMA
     Dosage: 100 MG, DAILY, ORAL; 400 MG, DAILY, ORAL; 100 MG, DAILY, ORAL
     Route: 048
     Dates: start: 20030401, end: 20040301
  4. DEXAMETHASONE [Suspect]
     Indication: MULTIPLE MYELOMA
     Dosage: 40 MG, 4 DAYS Q MONTH, PER ORAL; 40 MG, DAILY, PER ORAL;  40 MG, DAILY, PER ORAL;  40 MG, 4 DAYS Q M
     Route: 048
     Dates: start: 20030314, end: 20030317
  5. DEXAMETHASONE [Suspect]
     Indication: MULTIPLE MYELOMA
     Dosage: 40 MG, 4 DAYS Q MONTH, PER ORAL; 40 MG, DAILY, PER ORAL;  40 MG, DAILY, PER ORAL;  40 MG, 4 DAYS Q M
     Route: 048
     Dates: start: 20030301, end: 20040301
  6. DEXAMETHASONE [Suspect]
     Indication: MULTIPLE MYELOMA
     Dosage: 40 MG, 4 DAYS Q MONTH, PER ORAL; 40 MG, DAILY, PER ORAL;  40 MG, DAILY, PER ORAL;  40 MG, 4 DAYS Q M
     Route: 048
     Dates: start: 20030106
  7. DEXAMETHASONE [Suspect]
     Indication: MULTIPLE MYELOMA
     Dosage: 40 MG, 4 DAYS Q MONTH, PER ORAL; 40 MG, DAILY, PER ORAL;  40 MG, DAILY, PER ORAL;  40 MG, 4 DAYS Q M
     Route: 048
     Dates: start: 20030210
  8. VINCRISTINE [Suspect]
     Indication: MULTIPLE MYELOMA
     Dates: start: 20030106
  9. ADRIAMYCIN PFS [Suspect]
     Indication: MULTIPLE MYELOMA
     Dosage: 23 MG, QD, INTRAVENOUS
     Route: 042
     Dates: start: 20030314, end: 20030317
  10. ADRIAMYCIN PFS [Suspect]
     Indication: MULTIPLE MYELOMA
     Dosage: 23 MG, QD, INTRAVENOUS
     Route: 042
     Dates: start: 20030106
  11. CYCLOPHOSPHAMIDE [Suspect]
     Indication: MULTIPLE MYELOMA
     Dosage: 1155 MG, QD, INTRAVENOUS
     Route: 042
     Dates: start: 20030314, end: 20030317
  12. CYCLOPHOSPHAMIDE [Suspect]
     Indication: MULTIPLE MYELOMA
     Dosage: 1155 MG, QD, INTRAVENOUS
     Route: 042
     Dates: start: 20030210
  13. ETOPOSIDE [Suspect]
     Indication: MULTIPLE MYELOMA
     Dates: start: 20030210
  14. CISPLATIN [Suspect]
     Indication: MULTIPLE MYELOMA
     Dates: start: 20030210
  15. COUMADIN [Suspect]
     Indication: ANTICOAGULANT THERAPY
     Dates: start: 20030301, end: 20040310
  16. ZOMETA [Concomitant]
  17. PENTAMIDINE (PENTAMIDINE) [Concomitant]
  18. FLUCONAZOLE [Concomitant]
  19. ACYCLOVIR [Concomitant]
  20. TEQUIN [Concomitant]
  21. FOLIC ACID [Concomitant]
  22. VITAMIN B12 [Concomitant]
  23. PROTONIX [Concomitant]
  24. FENTANYL CITRATE [Concomitant]
  25. MELPHALAN [Concomitant]

REACTIONS (2)
  - DEEP VEIN THROMBOSIS [None]
  - RECTAL HAEMORRHAGE [None]
